FAERS Safety Report 13357391 (Version 1)
Quarter: 2017Q1

REPORT INFORMATION
  Report Type: Spontaneous
  Country: US (occurrence: US)
  Receive Date: 20170322
  Receipt Date: 20170322
  Transmission Date: 20170429
  Serious: No
  Sender: FDA-Public Use
  Company Number: US-AMGEN-USASP2017039546

PATIENT
  Age: 65 Year
  Sex: Female
  Weight: 86.17 kg

DRUGS (2)
  1. ENBREL [Suspect]
     Active Substance: ETANERCEPT
     Indication: RHEUMATOID ARTHRITIS
     Dosage: 50 MG, QWK
     Route: 058
     Dates: start: 2013
  2. PRALUENT [Concomitant]
     Active Substance: ALIROCUMAB
     Dosage: UNK
     Route: 065

REACTIONS (1)
  - Emphysema [Unknown]

NARRATIVE: CASE EVENT DATE: 2016
